FAERS Safety Report 4460123-8 (Version None)
Quarter: 2004Q3

REPORT INFORMATION
  Report Type: 
  Country: None (occurrence: None)
  Receive Date: 20040928
  Receipt Date: 20031218
  Transmission Date: 20050211
  Serious: No
  Sender: FDA-Public Use
  Company Number: US-GLAXOSMITHKLINE-A0443657A

PATIENT
  Age: 58 Year
  Sex: Female

DRUGS (7)
  1. SEREVENT [Suspect]
     Indication: ASTHMA
     Dosage: 2PUFF THREE TIMES PER DAY
     Route: 055
     Dates: start: 20031001, end: 20031218
  2. RHINOCORT [Concomitant]
  3. PROVENTIL [Concomitant]
  4. VITAMIN C [Concomitant]
  5. TOPAMAX [Concomitant]
  6. VITAMIN A [Concomitant]
  7. VITAMIN B2 [Concomitant]
     Route: 065

REACTIONS (2)
  - CHEST PAIN [None]
  - WHEEZING [None]
